FAERS Safety Report 23100037 (Version 2)
Quarter: 2023Q4

REPORT INFORMATION
  Report Type: Spontaneous
  Country: BA (occurrence: BA)
  Receive Date: 20231024
  Receipt Date: 20231110
  Transmission Date: 20240109
  Serious: Yes (Disabling, Other)
  Sender: FDA-Public Use
  Company Number: BA-009507513-2310BIH008996

PATIENT
  Age: 67 Year
  Sex: Male

DRUGS (2)
  1. KEYTRUDA [Suspect]
     Active Substance: PEMBROLIZUMAB
     Indication: Malignant melanoma
     Dosage: 200 MILLIGRAM, EVERY 3 WEEK (3W) CYCLE (42 CYCLE IN TOTAL)
     Dates: start: 20200924, end: 20231012
  2. YERVOY [Suspect]
     Active Substance: IPILIMUMAB
     Indication: Malignant melanoma
     Dosage: 100 MILLIGRAM, Q3W (4 CYCLES IN TOTAL)
     Dates: start: 20230106, end: 20230317

REACTIONS (3)
  - Rheumatoid arthritis [Recovered/Resolved with Sequelae]
  - Product use issue [Unknown]
  - Product use issue [Unknown]

NARRATIVE: CASE EVENT DATE: 20230106
